FAERS Safety Report 10230025 (Version 1)
Quarter: 2014Q2

REPORT INFORMATION
  Report Type: Spontaneous
  Country: US (occurrence: US)
  Receive Date: 20140611
  Receipt Date: 20140611
  Transmission Date: 20141212
  Serious: No
  Sender: FDA-Public Use
  Company Number: US-ABBVIE-14P-163-1220983-00

PATIENT
  Age: 84 Year
  Sex: Female
  Weight: 67.65 kg

DRUGS (7)
  1. POTASSIUM CHLORIDE EXTENDED-RELEASE [Suspect]
     Indication: MINERAL SUPPLEMENTATION
     Route: 048
     Dates: start: 20140301
  2. METOPROLOL [Concomitant]
     Indication: ATRIAL FIBRILLATION
  3. AMLODIPINE [Concomitant]
     Indication: HYPERTENSION
  4. LOSARTAN POTASSIUM [Concomitant]
     Indication: HYPERTENSION
  5. PRILOSEC [Concomitant]
     Indication: DYSPEPSIA
  6. HYDROCHLOROTHIAZIDE [Concomitant]
     Indication: FLUID RETENTION
  7. WARFARIN [Concomitant]
     Indication: THROMBOSIS

REACTIONS (1)
  - Medication residue present [Not Recovered/Not Resolved]
